FAERS Safety Report 6526238-5 (Version None)
Quarter: 2010Q1

REPORT INFORMATION
  Report Type: 
  Country: None (occurrence: None)
  Receive Date: 20100104
  Receipt Date: 20091229
  Transmission Date: 20100710
  Serious: Yes (Death)
  Sender: FDA-Public Use
  Company Number: DE-GENENTECH-295952

PATIENT
  Sex: Female

DRUGS (2)
  1. RANIBIZUMAB [Suspect]
     Indication: MACULAR DEGENERATION
     Dosage: UNK
     Route: 031
     Dates: start: 20080709
  2. RANIBIZUMAB [Suspect]
     Dosage: UNK
     Dates: start: 20080917

REACTIONS (3)
  - DEATH [None]
  - NERVOUSNESS [None]
  - VISUAL ACUITY REDUCED [None]
